FAERS Safety Report 16397174 (Version 2)
Quarter: 2019Q2

REPORT INFORMATION
  Report Type: Spontaneous
  Country: US (occurrence: US)
  Receive Date: 20190606
  Receipt Date: 20190607
  Transmission Date: 20190711
  Serious: Yes (Other)
  Sender: FDA-Public Use
  Company Number: US-ASTRAZENECA-2019SE82240

PATIENT
  Age: 1 Year
  Sex: Female
  Weight: 9 kg

DRUGS (4)
  1. ALBUTEROL. [Concomitant]
     Active Substance: ALBUTEROL
     Dosage: MINIMUM OF TWO TIMES A DAY, AND AS REQUIRED EMERGENCY INHALER
     Route: 055
  2. SYMBICORT [Suspect]
     Active Substance: BUDESONIDE\FORMOTEROL FUMARATE DIHYDRATE
     Indication: BRONCHOSPASM
     Dosage: 80/4.5 MCG, 2 PUFFS WITH A VENTILATOR, TWO TIMES A DAY
     Route: 055
  3. VITAMINS NOS [Concomitant]
     Active Substance: VITAMINS
     Dosage: UNKNOWN
     Route: 065
  4. BOSENTAN. [Concomitant]
     Active Substance: BOSENTAN
     Indication: PULMONARY HYPERTENSION
     Dosage: UNKNOWN
     Route: 065

REACTIONS (6)
  - Pulmonary hypertension [Unknown]
  - Off label use [Unknown]
  - Product use in unapproved indication [Unknown]
  - Product use issue [Unknown]
  - Device breakage [Unknown]
  - Intentional product misuse [Unknown]
